FAERS Safety Report 24560138 (Version 3)
Quarter: 2024Q4

REPORT INFORMATION
  Report Type: Spontaneous
  Country: CN (occurrence: CN)
  Receive Date: 20241029
  Receipt Date: 20241114
  Transmission Date: 20250114
  Serious: Yes (Life-Threatening)
  Sender: CHENGDU SUNCADIA MEDICINE CO., LTD.
  Company Number: CN-Chengdu Suncadia Medicine Co., Ltd.-2164011

PATIENT
  Age: 55 Year
  Sex: Female
  Weight: 66.5 kg

DRUGS (4)
  1. TACROLIMUS [Suspect]
     Active Substance: TACROLIMUS
     Indication: Interstitial lung disease
  2. TACROLIMUS [Suspect]
     Active Substance: TACROLIMUS
     Indication: Dermatomyositis
  3. OMEPRAZOLE [Suspect]
     Active Substance: OMEPRAZOLE
  4. METHYLPREDNISOLONE SODIUM SUCCINATE [Concomitant]
     Active Substance: METHYLPREDNISOLONE SODIUM SUCCINATE

REACTIONS (3)
  - Toxicity to various agents [Recovered/Resolved]
  - Drug interaction [Unknown]
  - Off label use [Unknown]
